FAERS Safety Report 7516194-5 (Version None)
Quarter: 2011Q2

REPORT INFORMATION
  Report Type: 
  Country: None (occurrence: None)
  Receive Date: 20110601
  Receipt Date: 20110523
  Transmission Date: 20111010
  Serious: Yes (Hospitalization)
  Sender: FDA-Public Use
  Company Number: US-ROCHE-780053

PATIENT
  Sex: Male
  Weight: 63 kg

DRUGS (1)
  1. BEVACIZUMAB [Suspect]
     Dosage: 5 MG/KG, Q2W
     Route: 042
     Dates: start: 20101228

REACTIONS (1)
  - DEEP VEIN THROMBOSIS [None]
